FAERS Safety Report 18627767 (Version 1)
Quarter: 2020Q4

REPORT INFORMATION
  Report Type: Spontaneous
  Country: GB (occurrence: GB)
  Receive Date: 20201217
  Receipt Date: 20201217
  Transmission Date: 20210114
  Serious: Yes (Disabling)
  Sender: FDA-Public Use
  Company Number: GB-MYLANLABS-2020M1101699

PATIENT
  Age: 74 Year
  Sex: Female
  Weight: 84 kg

DRUGS (5)
  1. CODEINE PHOSPHATE [Concomitant]
     Active Substance: CODEINE PHOSPHATE
     Indication: PAIN
     Dosage: 1-2 FOUR TIMES DAILYAS REQUIRED. CAN ...
     Dates: start: 20200928, end: 20201005
  2. PREDNISOLONE. [Concomitant]
     Active Substance: PREDNISOLONE
     Dosage: 3 DOSAGE FORM, QD
     Dates: start: 20201104
  3. ALENDRONATE [Suspect]
     Active Substance: ALENDRONATE SODIUM
     Indication: PRODUCT USED FOR UNKNOWN INDICATION
     Dosage: ON THE SAME DAY EACH WEEK
     Dates: start: 20201104
  4. AMITRIPTYLINE HYDROCHLORIDE. [Concomitant]
     Active Substance: AMITRIPTYLINE HYDROCHLORIDE
     Dosage: TO BE TAKEN EACH NIGHT. CAN CAUSE SOME S...
     Dates: start: 20200316
  5. PARACETAMOL [Concomitant]
     Active Substance: ACETAMINOPHEN
     Dosage: WHEN REQUIRED FOR PA...
     Dates: start: 20200417

REACTIONS (2)
  - Dysphagia [Unknown]
  - Yawning [Unknown]

NARRATIVE: CASE EVENT DATE: 20201109
